FAERS Safety Report 6368973-8 (Version None)
Quarter: 2009Q3

REPORT INFORMATION
  Report Type: 
  Country: None (occurrence: None)
  Receive Date: 20090922
  Receipt Date: 20090914
  Transmission Date: 20100115
  Serious: Yes (Other)
  Sender: FDA-Public Use
  Company Number: DE-ELI_LILLY_AND_COMPANY-DE200909003128

PATIENT
  Age: 57 Year
  Sex: Female
  Weight: 65 kg

DRUGS (3)
  1. BYETTA [Suspect]
     Indication: TYPE 2 DIABETES MELLITUS
     Dosage: 10 UG, DAILY (1/D)
     Route: 058
     Dates: start: 20090714, end: 20090801
  2. GLIMEPIRIDE [Concomitant]
     Indication: TYPE 2 DIABETES MELLITUS
     Dosage: 1 D/F, DAILY (1/D)
     Route: 048
  3. GLUCOPHAGE [Concomitant]
     Indication: TYPE 2 DIABETES MELLITUS
     Dosage: UNK, UNKNOWN
     Route: 048

REACTIONS (4)
  - DYSPEPSIA [None]
  - PAIN [None]
  - PANCREATITIS [None]
  - THROAT TIGHTNESS [None]
